FAERS Safety Report 25073786 (Version 2)
Quarter: 2025Q2

REPORT INFORMATION
  Report Type: Spontaneous
  Country: CN (occurrence: CN)
  Receive Date: 20250313
  Receipt Date: 20250407
  Transmission Date: 20250717
  Serious: Yes (Other)
  Sender: MERCK SHARP AND DOHME
  Company Number: CN-009507513-2262507

PATIENT
  Age: 62 Year
  Sex: Male
  Weight: 51 kg

DRUGS (3)
  1. SACITUZUMAB TIRUMOTECAN [Suspect]
     Active Substance: SACITUZUMAB TIRUMOTECAN
     Indication: Lung neoplasm malignant
     Dates: start: 20250113
  2. SACITUZUMAB TIRUMOTECAN [Suspect]
     Active Substance: SACITUZUMAB TIRUMOTECAN
     Indication: Lung neoplasm malignant
     Dates: start: 20241231
  3. SACITUZUMAB TIRUMOTECAN [Suspect]
     Active Substance: SACITUZUMAB TIRUMOTECAN
     Indication: Lung neoplasm malignant
     Dates: start: 20250124

REACTIONS (2)
  - Epilepsy [Unknown]
  - Off label use [Unknown]

NARRATIVE: CASE EVENT DATE: 20241231
